FAERS Safety Report 5522540-4 (Version None)
Quarter: 2007Q4

REPORT INFORMATION
  Report Type: 
  Country: None (occurrence: None)
  Receive Date: 20071120
  Receipt Date: 20071114
  Transmission Date: 20080405
  Serious: Yes (Other)
  Sender: FDA-Public Use
  Company Number: US-ELI_LILLY_AND_COMPANY-US200711003315

PATIENT
  Sex: Female

DRUGS (6)
  1. HUMALOG [Suspect]
     Dosage: 3 U, 3/D
  2. DIOVAN [Concomitant]
     Indication: HYPERTENSION
     Dosage: 320 MG, DAILY (1/D)
     Dates: start: 20071026
  3. DIOVAN HCT [Concomitant]
     Indication: HYPERTENSION
     Dosage: 320 MG, DAILY (1/D)
     Dates: end: 20071026
  4. VERELAN [Concomitant]
     Indication: HYPERTENSION
     Dosage: 200 MG, DAILY (1/D)
     Dates: start: 20071026
  5. LANTUS [Concomitant]
     Indication: DIABETES MELLITUS
     Dosage: 10 U, EACH EVENING
  6. CLARITIN [Concomitant]
     Indication: HYPERSENSITIVITY
     Dosage: UNK, DAILY (1/D)

REACTIONS (6)
  - BASAL CELL CARCINOMA [None]
  - MALIGNANT MELANOMA [None]
  - PHOTOSENSITIVITY REACTION [None]
  - PRURITUS [None]
  - RASH [None]
  - SKIN BURNING SENSATION [None]
